FAERS Safety Report 20549463 (Version 1)
Quarter: 2022Q1

REPORT INFORMATION
  Report Type: Spontaneous
  Country: US (occurrence: US)
  Receive Date: 20220303
  Receipt Date: 20220303
  Transmission Date: 20220423
  Serious: No
  Sender: FDA-Public Use
  Company Number: US-ESPERIONTHERAPEUTICS-2022USA00219

PATIENT
  Sex: Female

DRUGS (2)
  1. NEXLIZET [Suspect]
     Active Substance: BEMPEDOIC ACID\EZETIMIBE
     Indication: Blood cholesterol increased
     Dosage: UNK
     Route: 065
  2. NEXLIZET [Suspect]
     Active Substance: BEMPEDOIC ACID\EZETIMIBE
     Dosage: UNK
     Route: 065
     Dates: end: 202201

REACTIONS (1)
  - Abdominal pain upper [Recovered/Resolved]
